FAERS Safety Report 14064689 (Version 2)
Quarter: 2017Q4

REPORT INFORMATION
  Report Type: Spontaneous
  Country: GB (occurrence: GB)
  Receive Date: 20171009
  Receipt Date: 20171018
  Transmission Date: 20180321
  Serious: Yes (Other)
  Sender: FDA-Public Use
  Company Number: GB-SA-2017SA164971

PATIENT
  Sex: Male

DRUGS (1)
  1. MYOZYME [Suspect]
     Active Substance: ALGLUCOSIDASE ALFA
     Route: 041

REACTIONS (6)
  - Pertussis [Unknown]
  - Musculoskeletal disorder [Unknown]
  - Product use issue [Unknown]
  - Secretion discharge [Recovering/Resolving]
  - Pneumonia streptococcal [Unknown]
  - Rash [Unknown]
